FAERS Safety Report 7487248-7 (Version None)
Quarter: 2011Q2

REPORT INFORMATION
  Report Type: 
  Country: None (occurrence: None)
  Receive Date: 20110510
  Receipt Date: 20110503
  Transmission Date: 20111010
  Serious: Yes (Other)
  Sender: FDA-Public Use
  Company Number: 1000020689

PATIENT
  Sex: Male

DRUGS (1)
  1. LEXAPRO [Suspect]
     Dosage: TRANSPLACENTAL
     Route: 064

REACTIONS (3)
  - VENTRICULAR SEPTAL DEFECT [None]
  - NEONATAL RESPIRATORY DISTRESS SYNDROME [None]
  - MATERNAL DRUGS AFFECTING FOETUS [None]
